FAERS Safety Report 15121547 (Version 1)
Quarter: 2018Q3

REPORT INFORMATION
  Report Type: Spontaneous
  Country: US (occurrence: US)
  Receive Date: 20180613
  Receipt Date: 20180613
  Transmission Date: 20181010
  Serious: Yes (Disabling)
  Sender: FDA-Public Use
  Company Number: None

PATIENT
  Age: 73 Year
  Sex: Female
  Weight: 69.75 kg

DRUGS (12)
  1. ASPIRIN. [Concomitant]
     Active Substance: ASPIRIN
  2. VITAMIN D3 [Concomitant]
     Active Substance: CHOLECALCIFEROL
  3. MULTIVITAMIN [Concomitant]
     Active Substance: VITAMINS
  4. ALIGN [Concomitant]
     Active Substance: BIFIDOBACTERIUM LONGUM SUBSP. INFANTIS
  5. GLUCOSAMINE/CHONDROITIN [Concomitant]
  6. LIVALO [Concomitant]
     Active Substance: PITAVASTATIN CALCIUM
  7. CRESTOR [Concomitant]
     Active Substance: ROSUVASTATIN CALCIUM
  8. VITAMIN C [Concomitant]
     Active Substance: ASCORBIC ACID
  9. SYNTHROID [Suspect]
     Active Substance: LEVOTHYROXINE SODIUM
     Indication: AUTOIMMUNE THYROIDITIS
     Route: 048
     Dates: start: 20060201, end: 20180507
  10. FISH OIL [Suspect]
     Active Substance: FISH OIL
  11. SYNTHROID [Suspect]
     Active Substance: LEVOTHYROXINE SODIUM
     Indication: HYPOTHYROIDISM
     Route: 048
     Dates: start: 20060201, end: 20180507
  12. FOCUS WITH LUTEIN [Concomitant]

REACTIONS (3)
  - Product substitution issue [None]
  - Myalgia [None]
  - Ligament sprain [None]

NARRATIVE: CASE EVENT DATE: 20160102
